FAERS Safety Report 6359201-8 (Version None)
Quarter: 2009Q3

REPORT INFORMATION
  Report Type: 
  Country: None (occurrence: None)
  Receive Date: 20090917
  Receipt Date: 20080115
  Transmission Date: 20100115
  Serious: Yes (Hospitalization)
  Sender: FDA-Public Use
  Company Number: US-ASTRAZENECA-2007UW02113

PATIENT
  Age: 16622 Day
  Sex: Female
  Weight: 86.2 kg

DRUGS (5)
  1. SEROQUEL [Suspect]
     Indication: MAJOR DEPRESSION
     Dosage: 25- 250 MG
     Route: 048
     Dates: start: 20030130
  2. SEROQUEL [Suspect]
     Dosage: 25 TO 250 MG
     Route: 048
     Dates: start: 20030401
  3. ZYPREXA [Concomitant]
     Dosage: 5 TO 20 MG
     Dates: start: 20020501, end: 20020801
  4. SYNTHROID [Concomitant]
     Route: 048
     Dates: start: 20020516
  5. NEURONTIN [Concomitant]
     Dates: start: 20030626

REACTIONS (16)
  - ARTHRALGIA [None]
  - ARTHRITIS [None]
  - BACK PAIN [None]
  - CERVICOBRACHIAL SYNDROME [None]
  - CONVULSION [None]
  - DIABETIC COMA [None]
  - INJURY [None]
  - INTERVERTEBRAL DISC PROTRUSION [None]
  - LIMB INJURY [None]
  - MUSCLE STRAIN [None]
  - OTITIS EXTERNA [None]
  - OVERDOSE [None]
  - SUICIDAL IDEATION [None]
  - TOOTHACHE [None]
  - TYPE 1 DIABETES MELLITUS [None]
  - TYPE 2 DIABETES MELLITUS [None]
